FAERS Safety Report 23878025 (Version 1)
Quarter: 2024Q2

REPORT INFORMATION
  Report Type: Spontaneous
  Country: DE (occurrence: DE)
  Receive Date: 20240521
  Receipt Date: 20240521
  Transmission Date: 20240716
  Serious: Yes (Hospitalization, Other)
  Sender: FDA-Public Use
  Company Number: DE-GLANDPHARMA-DE-2024GLNLIT00139

PATIENT
  Age: 66 Year
  Sex: Male

DRUGS (4)
  1. PANTOPRAZOLE SODIUM [Suspect]
     Active Substance: PANTOPRAZOLE SODIUM
     Indication: Product use in unapproved indication
     Route: 065
  2. INCLISIRAN [Concomitant]
     Active Substance: INCLISIRAN
     Indication: Myopathy
     Dosage: UNDER MAXIMUM STATIN DOSAGES
     Route: 058
  3. INCLISIRAN [Concomitant]
     Active Substance: INCLISIRAN
     Indication: Type IIa hyperlipidaemia
  4. METHYLPREDNISOLONE [Concomitant]
     Active Substance: METHYLPREDNISOLONE
     Indication: Product used for unknown indication
     Route: 042

REACTIONS (3)
  - Drug-induced liver injury [Recovering/Resolving]
  - Hepatic fibrosis [Unknown]
  - Condition aggravated [Unknown]
